FAERS Safety Report 8876794 (Version 1)
Quarter: 2012Q4

REPORT INFORMATION
  Report Type: 
  Country: US (occurrence: US)
  Receive Date: 20121023
  Receipt Date: 20121023
  Transmission Date: 20130627
  Serious: No
  Sender: FDA-Public Use
  Company Number: US-AMGEN-USASP2012038715

PATIENT
  Age: 16 Year
  Sex: Female
  Weight: 90.7 kg

DRUGS (11)
  1. ENBREL [Suspect]
     Indication: PRODUCT USED FOR UNKNOWN INDICATION
     Dosage: 50 mg, qwk
     Route: 058
  2. PLAQUENIL                          /00072602/ [Concomitant]
     Dosage: 200 mg, UNK
  3. ULTRAM [Concomitant]
     Dosage: 50 mg, UNK
  4. METHOTREXATE [Concomitant]
     Dosage: 2.5 mg, UNK
  5. GABAPENTIN [Concomitant]
     Dosage: 100 mg, UNK
  6. REPLESTA [Concomitant]
     Dosage: 50000 IU, UNK
  7. BENADRYL                           /00000402/ [Concomitant]
     Dosage: 25 mg, UNK
  8. IBUPROFEN [Concomitant]
     Dosage: 200 mg, UNK
  9. IRON [Concomitant]
     Dosage: 18 mg, UNK
  10. ALEVE [Concomitant]
     Dosage: 220 mg, UNK
  11. FOLIC ACID [Concomitant]

REACTIONS (3)
  - Swelling [Unknown]
  - Injection site erythema [Unknown]
  - Pruritus [Unknown]
